FAERS Safety Report 6933217-2 (Version None)
Quarter: 2010Q3

REPORT INFORMATION
  Report Type: 
  Country: None (occurrence: None)
  Receive Date: 20100820
  Receipt Date: 20100809
  Transmission Date: 20110219
  Serious: Yes (Hospitalization, Other)
  Sender: FDA-Public Use
  Company Number: US-ELI_LILLY_AND_COMPANY-US201008002929

PATIENT
  Sex: Male

DRUGS (5)
  1. HUMULIN 70/30 [Suspect]
     Indication: TYPE 2 DIABETES MELLITUS
     Dosage: 16 U, 2/D
  2. HUMULIN N [Suspect]
     Indication: TYPE 2 DIABETES MELLITUS
  3. ACTOS [Concomitant]
     Dosage: 45 MG, UNK
  4. SIMVASTATIN [Concomitant]
  5. ASPIRIN [Concomitant]

REACTIONS (8)
  - AGEUSIA [None]
  - CORONARY ARTERY BYPASS [None]
  - DRY MOUTH [None]
  - INCORRECT DOSE ADMINISTERED [None]
  - NECK MASS [None]
  - STENT MALFUNCTION [None]
  - STENT PLACEMENT [None]
  - WEIGHT DECREASED [None]
